FAERS Safety Report 8568567 (Version 5)
Quarter: 2013Q3

REPORT INFORMATION
  Report Type: Report from Study
  Country: GB (occurrence: GB)
  Receive Date: 20120518
  Receipt Date: 20130814
  Transmission Date: 20140515
  Serious: Yes (Hospitalization)
  Sender: FDA-Public Use
  Company Number: GB-PFIZER INC-2012112030

PATIENT
  Age: 54 Year
  Sex: Male

DRUGS (7)
  1. SUNITINIB MALATE [Suspect]
     Indication: TRANSITIONAL CELL CARCINOMA
     Dosage: 25 MG, UNK
     Dates: start: 20120403
  2. CISPLATIN [Suspect]
     Indication: TRANSITIONAL CELL CARCINOMA
     Dosage: 140 MG, UNK
     Route: 042
     Dates: start: 20120402
  3. LEVOMEPROMAZINE [Suspect]
     Dosage: UNK
     Dates: end: 20120508
  4. GEMCITABINE [Concomitant]
     Indication: TRANSITIONAL CELL CARCINOMA
     Dosage: 2000 MG, UNK
     Route: 042
     Dates: start: 20120402
  5. ZOMORPH [Concomitant]
     Dosage: 60 MG, 2X/DAY
     Route: 048
     Dates: start: 20120403
  6. LANSOPRAZOLE [Concomitant]
     Dosage: 30 MG, 1X/DAY
     Route: 048
     Dates: start: 20120417
  7. ZOPICLONE [Concomitant]
     Dosage: 3.75 MG, 1X/DAY
     Route: 048
     Dates: start: 20120501

REACTIONS (1)
  - Syncope [Recovered/Resolved]
